FAERS Safety Report 12073062 (Version 2)
Quarter: 2016Q1

REPORT INFORMATION
  Report Type: Spontaneous
  Country: US (occurrence: US)
  Receive Date: 20160212
  Receipt Date: 20160218
  Transmission Date: 20160526
  Serious: Yes (Death, Other)
  Sender: FDA-Public Use
  Company Number: US-009507513-1601USA004040

PATIENT
  Sex: Male

DRUGS (2)
  1. EMEND [Suspect]
     Active Substance: APREPITANT
     Indication: PROPHYLAXIS OF NAUSEA AND VOMITING
     Dosage: 80 MG, DAY 2 AND 3, EVERY TWO WEEKS
     Route: 048
  2. EMEND [Suspect]
     Active Substance: APREPITANT
     Indication: CHEMOTHERAPY
     Dosage: 125 MG, DAY 1, EVERY TWO WEEKS
     Route: 048

REACTIONS (4)
  - Drug dose omission [Unknown]
  - Colon cancer stage IV [Fatal]
  - Metastases to peritoneum [Fatal]
  - Adverse event [Unknown]
